FAERS Safety Report 4382659-0 (Version None)
Quarter: 2004Q2

REPORT INFORMATION
  Report Type: 
  Country: None (occurrence: None)
  Receive Date: 20040622
  Receipt Date: 20040610
  Transmission Date: 20050107
  Serious: Yes (Hospitalization)
  Sender: FDA-Public Use
  Company Number: 365055

PATIENT
  Age: 48 Year
  Sex: Female

DRUGS (3)
  1. KREDEX [Suspect]
     Dosage: 50MG PER DAY
     Route: 048
     Dates: end: 20031120
  2. COVERSYL [Concomitant]
  3. HEMIGOXINE NATIVELLE [Concomitant]

REACTIONS (3)
  - CHEST PAIN [None]
  - DYSPNOEA EXERTIONAL [None]
  - PLEURAL EFFUSION [None]
